FAERS Safety Report 4794899-7 (Version None)
Quarter: 2005Q4

REPORT INFORMATION
  Report Type: 
  Country: None (occurrence: None)
  Receive Date: 20051012
  Receipt Date: 20050902
  Transmission Date: 20060501
  Serious: Yes (Hospitalization)
  Sender: FDA-Public Use
  Company Number: US-BOEHRINGER INGELHEIM PHARMACEUTICALS, INC.-2005-BP-15524BP

PATIENT
  Sex: Male
  Weight: 61.7 kg

DRUGS (2)
  1. TIPRANAVIR / RITONAVIR CAPSULES [Suspect]
     Indication: HIV INFECTION
     Dosage: TPV/R 1000/400
     Route: 048
     Dates: start: 20050316, end: 20050426
  2. FUZEON [Concomitant]
     Indication: HIV INFECTION
     Dates: start: 20040825

REACTIONS (5)
  - ABDOMINAL PAIN [None]
  - CACHEXIA [None]
  - EMPHYSEMA [None]
  - GALLBLADDER ENLARGEMENT [None]
  - PERICARDIAL EFFUSION [None]
